FAERS Safety Report 21045404 (Version 1)
Quarter: 2022Q3

REPORT INFORMATION
  Report Type: Spontaneous
  Country: IN (occurrence: IN)
  Receive Date: 20220706
  Receipt Date: 20220706
  Transmission Date: 20221027
  Serious: Yes (Other)
  Sender: FDA-Public Use
  Company Number: IN-NOVARTISPH-NVSC2022IN152120

PATIENT
  Age: 51 Year
  Sex: Male

DRUGS (2)
  1. IMATINIB [Suspect]
     Active Substance: IMATINIB
     Indication: Inflammatory myofibroblastic tumour
     Dosage: UNK
     Route: 065
  2. METHOTREXATE [Suspect]
     Active Substance: METHOTREXATE
     Indication: Inflammatory myofibroblastic tumour
     Dosage: UNK
     Route: 065

REACTIONS (4)
  - Inflammatory myofibroblastic tumour [Unknown]
  - Malignant neoplasm progression [Unknown]
  - Treatment failure [Unknown]
  - Product use in unapproved indication [Unknown]
